FAERS Safety Report 6201551-X (Version None)
Quarter: 2009Q2

REPORT INFORMATION
  Report Type: 
  Country: None (occurrence: None)
  Receive Date: 20090519
  Receipt Date: 20090512
  Transmission Date: 20091009
  Serious: Yes (Other)
  Sender: FDA-Public Use
  Company Number: ENT 2009-0025

PATIENT
  Age: 67 Year
  Sex: Female

DRUGS (10)
  1. COMTAN [Suspect]
     Indication: DRUG EFFECT DECREASED
     Dosage: 600 MG ORAL; 500 MG ORAL; 400 MG ORAL
     Route: 048
     Dates: start: 20070606, end: 20070717
  2. COMTAN [Suspect]
     Indication: PARKINSON'S DISEASE
     Dosage: 600 MG ORAL; 500 MG ORAL; 400 MG ORAL
     Route: 048
     Dates: start: 20070606, end: 20070717
  3. COMTAN [Suspect]
     Indication: DRUG EFFECT DECREASED
     Dosage: 600 MG ORAL; 500 MG ORAL; 400 MG ORAL
     Route: 048
     Dates: start: 20070718, end: 20070731
  4. COMTAN [Suspect]
     Indication: PARKINSON'S DISEASE
     Dosage: 600 MG ORAL; 500 MG ORAL; 400 MG ORAL
     Route: 048
     Dates: start: 20070718, end: 20070731
  5. COMTAN [Suspect]
     Indication: DRUG EFFECT DECREASED
     Dosage: 600 MG ORAL; 500 MG ORAL; 400 MG ORAL
     Route: 048
     Dates: start: 20070801
  6. COMTAN [Suspect]
     Indication: PARKINSON'S DISEASE
     Dosage: 600 MG ORAL; 500 MG ORAL; 400 MG ORAL
     Route: 048
     Dates: start: 20070801
  7. MENESIT [Suspect]
     Indication: PARKINSON'S DISEASE
     Dosage: 600 MG ORAL; 400 MG ORAL
     Route: 048
     Dates: start: 20040902, end: 20070731
  8. MENESIT [Suspect]
     Indication: PARKINSON'S DISEASE
     Dosage: 600 MG ORAL; 400 MG ORAL
     Route: 048
     Dates: start: 20070801
  9. REQUIP [Concomitant]
  10. SELEGILINE HCL [Concomitant]

REACTIONS (3)
  - DOPAMINE DYSREGULATION SYNDROME [None]
  - LOGORRHOEA [None]
  - PORIOMANIA [None]
